FAERS Safety Report 4576656-X (Version None)
Quarter: 2005Q1

REPORT INFORMATION
  Report Type: 
  Country: None (occurrence: None)
  Receive Date: 20050127
  Receipt Date: 20041122
  Transmission Date: 20050727
  Serious: No
  Sender: FDA-Public Use
  Company Number: USA041184349

PATIENT
  Age: 8 Year
  Sex: Female
  Weight: 20 kg

DRUGS (1)
  1. STRATTERA [Suspect]
     Dosage: 25 MG DAY
     Dates: start: 20030101

REACTIONS (6)
  - DISTRACTIBILITY [None]
  - DISTURBANCE IN ATTENTION [None]
  - DRUG INEFFECTIVE [None]
  - FATIGUE [None]
  - HEARING IMPAIRED [None]
  - INSOMNIA [None]
